FAERS Safety Report 7737422-7 (Version None)
Quarter: 2011Q3

REPORT INFORMATION
  Report Type: 
  Country: None (occurrence: None)
  Receive Date: 20110908
  Receipt Date: 20110826
  Transmission Date: 20111222
  Serious: Yes (Hospitalization)
  Sender: FDA-Public Use
  Company Number: US-GLAXOSMITHKLINE-A0810769A

PATIENT
  Age: 62 Year
  Sex: Male
  Weight: 95.5 kg

DRUGS (5)
  1. AMLODIPINE [Concomitant]
  2. GLIPIZIDE [Concomitant]
  3. AVANDIA [Suspect]
     Indication: DIABETES MELLITUS
     Dosage: 8MG PER DAY
     Route: 048
     Dates: start: 20020601, end: 20080101
  4. SIMVASTATIN [Concomitant]
  5. LISINOPRIL [Concomitant]

REACTIONS (1)
  - CEREBROVASCULAR ACCIDENT [None]
